FAERS Safety Report 6490802-2 (Version None)
Quarter: 2009Q4

REPORT INFORMATION
  Report Type: 
  Country: None (occurrence: None)
  Receive Date: 20091211
  Receipt Date: 20091203
  Transmission Date: 20100525
  Serious: Yes (Hospitalization)
  Sender: FDA-Public Use
  Company Number: GB-BRISTOL-MYERS SQUIBB COMPANY-14885875

PATIENT
  Age: 49 Year
  Sex: Female
  Weight: 88 kg

DRUGS (8)
  1. ARIPIPRAZOLE [Suspect]
     Indication: SCHIZOAFFECTIVE DISORDER
     Route: 048
     Dates: start: 20090127, end: 20090101
  2. HALOPERIDOL [Suspect]
     Indication: SCHIZOAFFECTIVE DISORDER
     Route: 030
  3. VALPROATE SODIUM [Suspect]
     Indication: EPILEPSY
     Dosage: DOSE INCREASED TO 1600MG 1/1D
     Route: 048
     Dates: start: 20090127
  4. ASPIRIN [Concomitant]
     Route: 048
  5. NITRAZEPAM [Concomitant]
     Route: 048
  6. RAMIPRIL [Concomitant]
     Route: 048
  7. SERTRALINE HCL [Concomitant]
     Indication: DEPRESSION
     Route: 048
  8. SIMVASTATIN [Concomitant]
     Route: 048

REACTIONS (2)
  - CONVERSION DISORDER [None]
  - CONVULSION [None]
